FAERS Safety Report 18830792 (Version 1)
Quarter: 2021Q1

REPORT INFORMATION
  Report Type: Spontaneous
  Country: US (occurrence: US)
  Receive Date: 20210201
  Receipt Date: 20210201
  Transmission Date: 20210419
  Serious: Yes (Other)
  Sender: FDA-Public Use
  Company Number: US-ABBVIE-20K-163-3689325-00

PATIENT
  Sex: Female
  Weight: 75 kg

DRUGS (6)
  1. XELJANZ XR [Suspect]
     Active Substance: TOFACITINIB CITRATE
     Indication: RHEUMATOID ARTHRITIS
     Dosage: OVAL PINKY BROWN TABLET
     Route: 048
     Dates: start: 201909, end: 202011
  2. METHOTREXATE. [Suspect]
     Active Substance: METHOTREXATE
     Route: 065
  3. ARAVA [Suspect]
     Active Substance: LEFLUNOMIDE
     Indication: PRODUCT USED FOR UNKNOWN INDICATION
     Route: 065
  4. METHOTREXATE. [Suspect]
     Active Substance: METHOTREXATE
     Indication: PRODUCT USED FOR UNKNOWN INDICATION
     Route: 065
  5. HUMIRA [Suspect]
     Active Substance: ADALIMUMAB
     Indication: PRODUCT USED FOR UNKNOWN INDICATION
     Route: 058
  6. XELJANZ XR [Suspect]
     Active Substance: TOFACITINIB CITRATE
     Route: 048
     Dates: start: 2020

REACTIONS (8)
  - Osteoarthritis [Unknown]
  - Squamous cell carcinoma [Recovered/Resolved]
  - Adverse drug reaction [Unknown]
  - Pain in extremity [Recovered/Resolved]
  - Illness [Unknown]
  - Peripheral swelling [Recovered/Resolved]
  - Rheumatoid arthritis [Unknown]
  - Therapeutic product effect incomplete [Unknown]
